FAERS Safety Report 8859125 (Version 1)
Quarter: 2012Q4

REPORT INFORMATION
  Report Type: Spontaneous
  Country: US (occurrence: None)
  Receive Date: 20121024
  Receipt Date: 20121024
  Transmission Date: 20130627
  Serious: No
  Sender: FDA-Public Use
  Company Number: None

PATIENT
  Age: 49 Year
  Sex: Female

DRUGS (2)
  1. PEGASYS [Suspect]
     Indication: HEPATITIS C
     Dosage: 180 mcg qw sq
     Route: 058
     Dates: start: 20120531, end: 20121018
  2. RIBAPAK [Suspect]
     Indication: HEPATITIS C
     Dosage: 600 mg bid po
     Route: 048
     Dates: start: 20120531, end: 20121018

REACTIONS (4)
  - Rash [None]
  - Blister [None]
  - Sebaceous gland disorder [None]
  - Skin disorder [None]
